FAERS Safety Report 4745851-9 (Version None)
Quarter: 2005Q3

REPORT INFORMATION
  Report Type: 
  Country: None (occurrence: None)
  Receive Date: 20050815
  Receipt Date: 20050815
  Transmission Date: 20060218
  Serious: Yes (Life-Threatening, Other)
  Sender: FDA-Public Use
  Company Number: None

PATIENT
  Age: 36 Year
  Sex: Female
  Weight: 70.3075 kg

DRUGS (1)
  1. PAXIL [Suspect]
     Indication: ANXIETY
     Dosage: 20MG  PER DAY  ORAL
     Route: 048
     Dates: start: 20040916, end: 20050727

REACTIONS (20)
  - AGGRESSION [None]
  - ALCOHOL POISONING [None]
  - ALCOHOLIC [None]
  - ANXIETY [None]
  - CRYING [None]
  - DEPRESSION [None]
  - DRUG WITHDRAWAL SYNDROME [None]
  - ECONOMIC PROBLEM [None]
  - EMOTIONAL DISORDER [None]
  - FAMILY STRESS [None]
  - IMPAIRED DRIVING ABILITY [None]
  - LOSS OF EMPLOYMENT [None]
  - MARITAL PROBLEM [None]
  - MOBILITY DECREASED [None]
  - NAUSEA [None]
  - OEDEMA PERIPHERAL [None]
  - PAIN [None]
  - PANIC ATTACK [None]
  - SMOKER [None]
  - WEIGHT INCREASED [None]
